FAERS Safety Report 5844743-1 (Version None)
Quarter: 2008Q3

REPORT INFORMATION
  Report Type: 
  Country: None (occurrence: None)
  Receive Date: 20080814
  Receipt Date: 20080807
  Transmission Date: 20090109
  Serious: Yes (Hospitalization)
  Sender: FDA-Public Use
  Company Number: DE-JNJFOC-20080700972

PATIENT
  Sex: Male
  Weight: 75 kg

DRUGS (4)
  1. CONCERTA [Suspect]
     Indication: DRUG USE FOR UNKNOWN INDICATION
     Route: 048
  2. IBUPROFEN [Suspect]
     Indication: DRUG USE FOR UNKNOWN INDICATION
     Route: 048
  3. VIVINOX [Suspect]
     Indication: DRUG USE FOR UNKNOWN INDICATION
     Route: 048
  4. VOMEX A [Suspect]
     Indication: DRUG USE FOR UNKNOWN INDICATION
     Route: 048

REACTIONS (7)
  - AGITATION [None]
  - DISORIENTATION [None]
  - DRY MOUTH [None]
  - MULTIPLE DRUG OVERDOSE [None]
  - MYDRIASIS [None]
  - SUICIDE ATTEMPT [None]
  - TACHYCARDIA [None]
